FAERS Safety Report 25980850 (Version 1)
Quarter: 2025Q4

REPORT INFORMATION
  Report Type: Spontaneous
  Country: EU (occurrence: EU)
  Receive Date: 20251030
  Receipt Date: 20251030
  Transmission Date: 20260117
  Serious: Yes (Hospitalization, Other)
  Sender: Kenvue
  Company Number: None

PATIENT

DRUGS (3)
  1. IBUPROFEN [Suspect]
     Active Substance: IBUPROFEN
     Indication: Muscle rupture
     Dosage: 600 MILLIGRAM, EVERY 8 HOURS (1 TABLET EVERY 8 HOURS)
     Route: 048
     Dates: start: 20250622
  2. FLUCONAZOLE [Suspect]
     Active Substance: FLUCONAZOLE
     Indication: Skin candida
     Dosage: 150 MILLIGRAM, ONCE IN A WEEK (1 WEEKLY)
     Route: 048
     Dates: start: 20250829
  3. KETOCONAZOLE [Concomitant]
     Active Substance: KETOCONAZOLE
     Indication: Skin candida
     Dosage: 1 DOSAGE FORM, EVERY 12 HOURS (1 APPLICATION EVERY 12 HOURS)
     Route: 061
     Dates: start: 20250829

REACTIONS (4)
  - Henoch-Schonlein purpura [Recovering/Resolving]
  - Acute kidney injury [Recovering/Resolving]
  - Cutaneous vasculitis [Recovering/Resolving]
  - IgA nephropathy [Recovering/Resolving]

NARRATIVE: CASE EVENT DATE: 20250829
